FAERS Safety Report 5839763-7 (Version None)
Quarter: 2008Q3

REPORT INFORMATION
  Report Type: 
  Country: None (occurrence: None)
  Receive Date: 20080811
  Receipt Date: 20080804
  Transmission Date: 20090109
  Serious: Yes (Life-Threatening, Hospitalization)
  Sender: FDA-Public Use
  Company Number: GB-BRISTOL-MYERS SQUIBB COMPANY-14287585

PATIENT
  Age: 73 Year
  Sex: Female

DRUGS (4)
  1. SPRYCEL [Suspect]
     Indication: CHRONIC MYELOID LEUKAEMIA
     Dosage: INITIAL DOSE 100MG/DAY, THEN DOSE WAS REDUCED TO 70MG/DAY ON 29FEB08 FOR UNK REASON
     Route: 048
     Dates: start: 20080210, end: 20080507
  2. MAGNESIUM GLYCEROPHOSPHATE [Concomitant]
     Indication: BLOOD MAGNESIUM DECREASED
     Route: 048
     Dates: start: 20080201
  3. PREDNISOLONE [Concomitant]
     Indication: RHEUMATOID ARTHRITIS
     Route: 048
  4. RISEDRONATE SODIUM [Concomitant]
     Indication: OSTEOPOROSIS PROPHYLAXIS
     Route: 048

REACTIONS (1)
  - PNEUMONITIS [None]
